FAERS Safety Report 17511960 (Version 1)
Quarter: 2020Q1

REPORT INFORMATION
  Report Type: Spontaneous
  Country: US (occurrence: US)
  Receive Date: 20200307
  Receipt Date: 20200307
  Transmission Date: 20200409
  Serious: No
  Sender: FDA-Public Use
  Company Number: US-TEVA-2020-US-1191432

PATIENT

DRUGS (1)
  1. NIACIN. [Suspect]
     Active Substance: NIACIN
     Route: 055

REACTIONS (1)
  - Drug hypersensitivity [Unknown]
